FAERS Safety Report 10031569 (Version 1)
Quarter: 2014Q1

REPORT INFORMATION
  Report Type: Spontaneous
  Country: DZ (occurrence: DZ)
  Receive Date: 20140324
  Receipt Date: 20140324
  Transmission Date: 20141002
  Serious: Yes (Hospitalization, Other)
  Sender: FDA-Public Use
  Company Number: DZ-NOVOPROD-403553

PATIENT
  Age: 64 Year
  Sex: Female
  Weight: 66 kg

DRUGS (2)
  1. NOVOMIX 30 [Suspect]
     Indication: TYPE 2 DIABETES MELLITUS
     Dosage: 36 U, QD (20U+16U)
     Route: 058
     Dates: start: 20140307, end: 20140310
  2. NOVOFORMINE [Concomitant]
     Dosage: UNK (3 PER DAY)
     Route: 065

REACTIONS (1)
  - Angioedema [Recovered/Resolved]
